FAERS Safety Report 8871970 (Version 1)
Quarter: 2012Q4

REPORT INFORMATION
  Report Type: 
  Country: US (occurrence: US)
  Receive Date: 20121023
  Receipt Date: 20121023
  Transmission Date: 20130627
  Serious: Yes (Hospitalization)
  Sender: FDA-Public Use
  Company Number: US-ASTELLAS-2012US005041

PATIENT
  Sex: Male

DRUGS (2)
  1. PROGRAF [Suspect]
     Indication: RENAL TRANSPLANT
     Dosage: UNK
     Route: 065
  2. PROGRAF [Suspect]
     Indication: LIVER TRANSPLANT

REACTIONS (3)
  - Drug ineffective [Unknown]
  - Liver transplant rejection [Unknown]
  - Kidney transplant rejection [Unknown]
